FAERS Safety Report 7832948 (Version 4)
Quarter: 2014Q4

REPORT INFORMATION
  Report Type: Spontaneous
  Country: US (occurrence: US)
  Receive Date: 20110228
  Receipt Date: 20141120
  Transmission Date: 20150529
  Serious: Yes (Hospitalization, Other)
  Sender: FDA-Public Use
  Company Number: US-ROCHE-702774

PATIENT
  Age: 15 Year
  Sex: Male
  Weight: 68 kg

DRUGS (5)
  1. ACCUTANE [Suspect]
     Active Substance: ISOTRETINOIN
     Route: 065
  2. ACCUTANE [Suspect]
     Active Substance: ISOTRETINOIN
     Indication: ACNE
     Dosage: 40 MG ON ODD DAYS AND 80 MG ON EVEN NO. DAYS
     Route: 065
     Dates: start: 19950519, end: 19951010
  3. ACCUTANE [Suspect]
     Active Substance: ISOTRETINOIN
     Route: 065
  4. ACCUTANE [Suspect]
     Active Substance: ISOTRETINOIN
     Route: 065
  5. AMPICILLIN [Concomitant]
     Active Substance: AMPICILLIN

REACTIONS (7)
  - Iron deficiency anaemia [Recovered/Resolved]
  - Haemorrhoids [Unknown]
  - Inflammatory bowel disease [Unknown]
  - Irritable bowel syndrome [Unknown]
  - Blood triglycerides increased [Unknown]
  - Crohn^s disease [Unknown]
  - Stress [Unknown]

NARRATIVE: CASE EVENT DATE: 19950620
